FAERS Safety Report 18790719 (Version 1)
Quarter: 2021Q1

REPORT INFORMATION
  Report Type: Spontaneous
  Country: US (occurrence: US)
  Receive Date: 20210126
  Receipt Date: 20210126
  Transmission Date: 20210419
  Serious: No
  Sender: FDA-Public Use
  Company Number: US-PFIZER INC-2021051227

PATIENT
  Age: 78 Year
  Sex: Female

DRUGS (1)
  1. METHOTREXATE SODIUM. [Suspect]
     Active Substance: METHOTREXATE SODIUM
     Indication: ARTHRALGIA
     Dosage: UNK
     Route: 058

REACTIONS (4)
  - Fatigue [Unknown]
  - Psoriasis [Unknown]
  - Joint stiffness [Unknown]
  - Therapeutic product effect incomplete [Not Recovered/Not Resolved]
